FAERS Safety Report 9160755 (Version 1)
Quarter: 2013Q1

REPORT INFORMATION
  Report Type: Spontaneous
  Country: GB (occurrence: GB)
  Receive Date: 20130313
  Receipt Date: 20130313
  Transmission Date: 20140127
  Serious: Yes (Other)
  Sender: FDA-Public Use
  Company Number: GB-PFIZER INC-2013080588

PATIENT
  Age: 50 Year
  Sex: Female

DRUGS (5)
  1. PHENYTOIN [Suspect]
     Dosage: 300 MG, 1X/DAY
  2. RAMIPRIL [Concomitant]
     Dosage: 2.5 MG, 1X/DAY
  3. THIAMINE [Concomitant]
     Dosage: 100 MG, 2X/DAY
  4. VITAMIN B [Concomitant]
     Dosage: 1 DF, 2X/DAY
  5. FOLIC ACID [Concomitant]
     Dosage: 5 MG, 1X/DAY

REACTIONS (4)
  - Toxicity to various agents [Recovered/Resolved]
  - Nervous system disorder [Recovered/Resolved]
  - Gingival hypertrophy [Unknown]
  - Hirsutism [Unknown]
